FAERS Safety Report 10733245 (Version 6)
Quarter: 2016Q2

REPORT INFORMATION
  Report Type: Report from Study
  Country: US (occurrence: US)
  Receive Date: 20150123
  Receipt Date: 20160504
  Transmission Date: 20160815
  Serious: Yes (Life-Threatening, Hospitalization, Other)
  Sender: FDA-Public Use
  Company Number: US-ALEXION PHARMACEUTICALS INC.-A201500143

PATIENT
  Age: 23 Year
  Sex: Female

DRUGS (3)
  1. SOLIRIS [Suspect]
     Active Substance: ECULIZUMAB
     Dosage: UNK, SINGLE
     Route: 042
     Dates: start: 20141231, end: 20141231
  2. SOLIRIS [Suspect]
     Active Substance: ECULIZUMAB
     Indication: HAEMOLYTIC URAEMIC SYNDROME
     Dosage: UNK, SINGLE
     Route: 042
     Dates: start: 20141126, end: 20141126
  3. SOLIRIS [Suspect]
     Active Substance: ECULIZUMAB
     Dosage: UNK, SINGLE
     Route: 042
     Dates: start: 20141215, end: 20141215

REACTIONS (11)
  - Cardio-respiratory arrest [Unknown]
  - Blood pressure abnormal [Unknown]
  - Pneumonia [Not Recovered/Not Resolved]
  - Pneumonia [Unknown]
  - Bronchitis [Not Recovered/Not Resolved]
  - Malnutrition [Unknown]
  - Ejection fraction decreased [Unknown]
  - Pharyngitis streptococcal [Unknown]
  - Inappropriate schedule of drug administration [Unknown]
  - Myocardial infarction [Unknown]
  - Peritonitis [Unknown]

NARRATIVE: CASE EVENT DATE: 20150617
